FAERS Safety Report 8213463-0 (Version None)
Quarter: 2012Q1

REPORT INFORMATION
  Report Type: 
  Country: None (occurrence: None)
  Receive Date: 20120315
  Receipt Date: 20120313
  Transmission Date: 20120608
  Serious: Yes (Hospitalization)
  Sender: FDA-Public Use
  Company Number: DE-ABBOTT-12P-062-0906926-00

PATIENT
  Age: 28 Year
  Sex: Male
  Weight: 60 kg

DRUGS (3)
  1. HUMIRA [Suspect]
     Indication: CROHN'S DISEASE
     Route: 058
     Dates: start: 20101122, end: 20110101
  2. HUMIRA [Suspect]
  3. HUMIRA [Suspect]
     Dosage: FIRST DOSE
     Dates: start: 20120101

REACTIONS (1)
  - INTESTINAL STENOSIS [None]
